FAERS Safety Report 18689949 (Version 2)
Quarter: 2021Q1

REPORT INFORMATION
  Report Type: Spontaneous
  Country: ES (occurrence: ES)
  Receive Date: 20201231
  Receipt Date: 20210104
  Transmission Date: 20210419
  Serious: Yes (Life-Threatening, Hospitalization, Other)
  Sender: FDA-Public Use
  Company Number: ES-TEVA-2020-ES-1863646

PATIENT
  Age: 77 Year
  Sex: Male
  Weight: 75 kg

DRUGS (8)
  1. BROMAZEPAM 1,5 MG CAPSULA [Concomitant]
  2. SIMVASTATINA (1023A) [Concomitant]
     Active Substance: SIMVASTATIN
  3. ALOPURINOL 300 MG COMPRIMIDO [Concomitant]
  4. MANIDON 80 MG COMPRIMIDOS CON CUBIERTA PELICULAR [Concomitant]
  5. QUETIAPINA 25 MG COMPRIMIDO [Suspect]
     Active Substance: QUETIAPINE FUMARATE
     Indication: AGITATION
     Dosage: 50 MILLIGRAM DAILY;
     Route: 048
     Dates: start: 20200526
  6. OMEPRAZOL, 20 MG, COMPRIMIDO [Concomitant]
     Active Substance: OMEPRAZOLE
  7. ADIRO 100 MG COMPRIMIDOS GASTRORRESISTENTES EFG [Concomitant]
     Active Substance: ASPIRIN
  8. ENALAPRIL 20 MG 28 COMPRIMIDOS [Concomitant]

REACTIONS (1)
  - Cerebrovascular accident [Unknown]

NARRATIVE: CASE EVENT DATE: 20201211
